FAERS Safety Report 16230133 (Version 2)
Quarter: 2019Q3

REPORT INFORMATION
  Report Type: Report from Study
  Country: ES (occurrence: ES)
  Receive Date: 20190423
  Receipt Date: 20190801
  Transmission Date: 20191004
  Serious: Yes (Death)
  Sender: FDA-Public Use
  Company Number: ES-PURDUE PHARMA-GBR-2019-0066008

PATIENT
  Age: 68 Year
  Sex: Male

DRUGS (5)
  1. FENTANYL. [Suspect]
     Active Substance: FENTANYL
     Indication: PAIN
     Dosage: 25 MCG, Q1H (25 MCG/H)
     Route: 062
     Dates: start: 20190218
  2. DEXAMETHASONE. [Concomitant]
     Active Substance: DEXAMETHASONE
     Indication: DECREASED APPETITE
     Dosage: 4 MG, DAILY
     Route: 048
     Dates: start: 20190312
  3. DILTIAZEM. [Suspect]
     Active Substance: DILTIAZEM
     Indication: ARRHYTHMIA
     Dosage: 180 MG, DAILY
     Route: 048
     Dates: start: 20170922
  4. DEXAMETHASONE. [Concomitant]
     Active Substance: DEXAMETHASONE
     Indication: ASTHENIA
  5. MORPHINE SULFATE. [Suspect]
     Active Substance: MORPHINE SULFATE
     Indication: PAIN
     Dosage: 20 MG, DAILY
     Route: 048
     Dates: start: 20190312

REACTIONS (5)
  - Peritonitis [Fatal]
  - Multiple organ dysfunction syndrome [Fatal]
  - Sepsis [Fatal]
  - Disease progression [Fatal]
  - Intestinal perforation [Fatal]

NARRATIVE: CASE EVENT DATE: 20190326
